FAERS Safety Report 8072616-5 (Version None)
Quarter: 2012Q1

REPORT INFORMATION
  Report Type: 
  Country: None (occurrence: None)
  Receive Date: 20120123
  Receipt Date: 20120109
  Transmission Date: 20120608
  Serious: Yes (Hospitalization, Other)
  Sender: FDA-Public Use
  Company Number: 2012P1002496

PATIENT
  Age: 28 Year
  Sex: Male

DRUGS (8)
  1. SUCCINATE [Concomitant]
  2. AMOXICILLIN [Interacting]
  3. ACETAMINOPHEN [Concomitant]
  4. METOPROLOL [Concomitant]
  5. SPIRONOLACTONE [Concomitant]
  6. FUROSEMIDE [Suspect]
     Indication: CARDIOMYOPATHY
     Dosage: 40;20;80; MG,X1,PO;IV
     Route: 048
  7. ENALAPRIL MALEATE [Concomitant]
  8. DIGOXIN [Concomitant]

REACTIONS (7)
  - THROMBOSIS [None]
  - BACTERAEMIA [None]
  - PRURITUS [None]
  - INCORRECT DOSE ADMINISTERED [None]
  - STEVENS-JOHNSON SYNDROME [None]
  - DISEASE COMPLICATION [None]
  - RENAL FAILURE ACUTE [None]
